FAERS Safety Report 8503642 (Version 3)
Quarter: 2012Q4

REPORT INFORMATION
  Report Type: 
  Country: US (occurrence: US)
  Receive Date: 20120411
  Receipt Date: 20120928
  Transmission Date: 20130627
  Serious: Yes (Hospitalization)
  Sender: FDA-Public Use
  Company Number: US-ASTRAZENECA-2012SE09953

PATIENT
  Age: 82 Year
  Sex: Female

DRUGS (3)
  1. NEXIUM [Suspect]
     Route: 048
  2. CRESTOR [Suspect]
     Route: 048
  3. HUMALOG [Concomitant]

REACTIONS (7)
  - VIIth nerve paralysis [Unknown]
  - Bronchitis [Unknown]
  - Diabetes mellitus [Unknown]
  - Cough [Unknown]
  - Blood glucose increased [Unknown]
  - Hiatus hernia [Unknown]
  - Malaise [Unknown]
